FAERS Safety Report 17059601 (Version 1)
Quarter: 2019Q4

REPORT INFORMATION
  Report Type: Spontaneous
  Country: US (occurrence: US)
  Receive Date: 20191121
  Receipt Date: 20191121
  Transmission Date: 20200122
  Serious: Yes (Other)
  Sender: FDA-Public Use
  Company Number: US-NOVOPROD-627733

PATIENT
  Sex: Female

DRUGS (1)
  1. NOVOLOG [Suspect]
     Active Substance: INSULIN ASPART
     Indication: PRODUCT USED FOR UNKNOWN INDICATION
     Dosage: UNK
     Route: 065

REACTIONS (6)
  - Skin warm [Unknown]
  - Malaise [Unknown]
  - Blood glucose increased [Unknown]
  - Visual impairment [Unknown]
  - Dysphagia [Unknown]
  - Expired product administered [Unknown]

NARRATIVE: CASE EVENT DATE: 20181015
